FAERS Safety Report 7737707-4 (Version None)
Quarter: 2011Q3

REPORT INFORMATION
  Report Type: 
  Country: None (occurrence: None)
  Receive Date: 20110908
  Receipt Date: 20110901
  Transmission Date: 20111222
  Serious: Yes (Death, Other)
  Sender: FDA-Public Use
  Company Number: JP-AMGEN-JPNCT2011038002

PATIENT
  Age: 68 Year
  Sex: Male
  Weight: 64 kg

DRUGS (11)
  1. HICEE [Concomitant]
     Dosage: UNK
     Route: 048
  2. OXALIPLATIN [Concomitant]
     Indication: COLORECTAL CANCER
     Route: 041
     Dates: start: 20100701, end: 20110216
  3. FLUOROURACIL [Concomitant]
     Route: 040
     Dates: start: 20100701, end: 20110216
  4. ANTIHISTAMINES [Concomitant]
     Indication: PROPHYLAXIS
     Dosage: UNK
     Route: 065
  5. ONDANSETRON [Concomitant]
     Dosage: UNK
     Route: 042
  6. CORTICOSTEROIDS [Concomitant]
     Indication: PROPHYLAXIS
     Dosage: UNK
     Route: 065
  7. LEUCOVORIN CALCIUM [Concomitant]
     Indication: COLORECTAL CANCER
     Route: 041
     Dates: start: 20100701, end: 20110216
  8. PANITUMUMAB [Suspect]
     Indication: COLORECTAL CANCER
     Dosage: 5 MG/KG, Q2WK
     Route: 041
     Dates: start: 20100701, end: 20110216
  9. FLUOROURACIL [Concomitant]
     Indication: COLORECTAL CANCER
     Route: 040
     Dates: start: 20100701, end: 20110216
  10. FLUOROURACIL [Concomitant]
     Route: 041
     Dates: start: 20100701, end: 20110216
  11. ORGADRONE [Concomitant]
     Dosage: UNK
     Route: 042

REACTIONS (6)
  - DERMATITIS ACNEIFORM [None]
  - HYPOMAGNESAEMIA [None]
  - MALAISE [None]
  - COLORECTAL CANCER [None]
  - HYPOAESTHESIA [None]
  - SKIN FISSURES [None]
